FAERS Safety Report 15731697 (Version 1)
Quarter: 2018Q4

REPORT INFORMATION
  Report Type: Spontaneous
  Country: DE (occurrence: DE)
  Receive Date: 20181217
  Receipt Date: 20181217
  Transmission Date: 20190205
  Serious: Yes (Hospitalization, Other)
  Sender: FDA-Public Use
  Company Number: PHHY2018DE186127

PATIENT
  Age: 94 Year
  Sex: Female

DRUGS (1)
  1. ZOLEDRONSAEURE ? 1 A PHARMA [Suspect]
     Active Substance: ZOLEDRONIC ACID
     Indication: PRODUCT USED FOR UNKNOWN INDICATION
     Dosage: UNK
     Route: 041
     Dates: start: 201711

REACTIONS (5)
  - Transient ischaemic attack [Unknown]
  - Spinal deformity [Unknown]
  - Asthenia [Unknown]
  - Balance disorder [Unknown]
  - Cachexia [Unknown]

NARRATIVE: CASE EVENT DATE: 201711
